FAERS Safety Report 12356553 (Version 1)
Quarter: 2016Q2

REPORT INFORMATION
  Report Type: Spontaneous
  Country: US (occurrence: US)
  Receive Date: 20160511
  Receipt Date: 20160511
  Transmission Date: 20160815
  Serious: Yes (Other)
  Sender: FDA-Public Use
  Company Number: US-MDT-ADR-2016-00011

PATIENT
  Age: 58 Year
  Sex: Female

DRUGS (3)
  1. BACLOFEN. [Suspect]
     Active Substance: BACLOFEN
     Dosage: 0.375/DAY
     Route: 037
  2. CLONIDINE. [Suspect]
     Active Substance: CLONIDINE
     Dosage: 2.19/DAY
     Route: 037
  3. MORPHINE [Suspect]
     Active Substance: MORPHINE
     Dosage: 0.0500/DAY
     Route: 037

REACTIONS (4)
  - Discomfort [Recovered/Resolved with Sequelae]
  - Vomiting [Recovered/Resolved with Sequelae]
  - Drug withdrawal syndrome [Recovered/Resolved with Sequelae]
  - Nausea [Recovered/Resolved with Sequelae]
